FAERS Safety Report 5214375-7 (Version None)
Quarter: 2007Q1

REPORT INFORMATION
  Report Type: 
  Country: None (occurrence: None)
  Receive Date: 20070122
  Receipt Date: 20070112
  Transmission Date: 20070707
  Serious: Yes (Other)
  Sender: FDA-Public Use
  Company Number: FR-GLAXOSMITHKLINE-B0454173A

PATIENT
  Age: 75 Year
  Sex: Female

DRUGS (7)
  1. AVANDAMET [Suspect]
     Indication: DIABETES MELLITUS NON-INSULIN-DEPENDENT
     Dosage: 1TAB TWICE PER DAY
     Route: 048
     Dates: start: 20060301, end: 20070112
  2. TAHOR [Suspect]
     Indication: DRUG USE FOR UNKNOWN INDICATION
     Dosage: 10MG PER DAY
     Route: 065
     Dates: start: 20060301, end: 20070112
  3. ZOLPIDEM TARTRATE [Concomitant]
     Route: 065
  4. CALTRATE VITAMINE D3 [Concomitant]
     Route: 065
  5. MEDIATOR [Concomitant]
     Route: 065
  6. VOLTAREN [Concomitant]
     Route: 065
  7. STRUCTUM [Concomitant]
     Route: 065

REACTIONS (5)
  - ANOREXIA [None]
  - LEUKOPENIA [None]
  - LYMPHOPENIA [None]
  - NEUTROPENIA [None]
  - THROMBOCYTOPENIA [None]
